FAERS Safety Report 9125093 (Version 1)
Quarter: 2013Q1

REPORT INFORMATION
  Report Type: Spontaneous
  Country: IE (occurrence: IE)
  Receive Date: 20130121
  Receipt Date: 20130121
  Transmission Date: 20140127
  Serious: Yes (Hospitalization)
  Sender: FDA-Public Use
  Company Number: IE-ASTRAZENECA-2013SE03516

PATIENT
  Age: 6 Month
  Sex: Male

DRUGS (6)
  1. SYNAGIS [Suspect]
     Route: 030
     Dates: start: 20121113
  2. SYNAGIS [Suspect]
     Route: 030
     Dates: start: 20130109
  3. FERINSOL [Concomitant]
  4. LOSEC [Concomitant]
  5. ERYTHROMYCIN [Concomitant]
  6. VITAMIN D [Concomitant]

REACTIONS (3)
  - Vomiting [Unknown]
  - Influenza like illness [Unknown]
  - Weight decreased [Unknown]
